APPROVED DRUG PRODUCT: VIVIMUSTA
Active Ingredient: BENDAMUSTINE HYDROCHLORIDE
Strength: 100MG/4ML (25MG/ML)
Dosage Form/Route: SOLUTION;INTRAVENOUS
Application: N212209 | Product #001
Applicant: AZURITY PHARMACEUTICALS INC
Approved: Dec 7, 2022 | RLD: Yes | RS: Yes | Type: RX

PATENTS:
Patent 12419867 | Expires: Jul 29, 2042
Patent 12208086 | Expires: Jul 29, 2042
Patent 11844784 | Expires: Jul 29, 2042
Patent 11707450 | Expires: Jul 29, 2042